FAERS Safety Report 15676129 (Version 1)
Quarter: 2018Q4

REPORT INFORMATION
  Report Type: Spontaneous
  Country: GB (occurrence: GB)
  Receive Date: 20181129
  Receipt Date: 20181129
  Transmission Date: 20190205
  Serious: Yes (Other)
  Sender: FDA-Public Use
  Company Number: None

PATIENT
  Age: 9 Year
  Sex: Male
  Weight: 22 kg

DRUGS (2)
  1. MONTELUCAST [Suspect]
     Active Substance: MONTELUKAST SODIUM
     Indication: SEASONAL ALLERGY
     Dosage: ?          QUANTITY:1 SACHET;?
     Route: 048
  2. MONTELUCAST [Suspect]
     Active Substance: MONTELUKAST SODIUM
     Indication: ASTHMA
     Dosage: ?          QUANTITY:1 SACHET;?
     Route: 048

REACTIONS (4)
  - Sleep terror [None]
  - Depression [None]
  - Anxiety [None]
  - Alice in wonderland syndrome [None]

NARRATIVE: CASE EVENT DATE: 20121126
